FAERS Safety Report 9602376 (Version 1)
Quarter: 2013Q4

REPORT INFORMATION
  Report Type: Report from Study
  Country: BR (occurrence: BR)
  Receive Date: 20131007
  Receipt Date: 20131007
  Transmission Date: 20140711
  Serious: Yes (Hospitalization, Other)
  Sender: FDA-Public Use
  Company Number: PHHY2013BR111274

PATIENT
  Age: 64 Year
  Sex: Female
  Weight: 73 kg

DRUGS (2)
  1. FORASEQ [Suspect]
     Indication: CHRONIC OBSTRUCTIVE PULMONARY DISEASE
     Dosage: 1 DF, Q12H
     Dates: end: 201307
  2. TIOTROPIUM [Concomitant]
     Dosage: 5 UG, DAILY

REACTIONS (7)
  - Pulmonary hypertension [Unknown]
  - Pulmonary artery dilatation [Unknown]
  - Chronic obstructive pulmonary disease [Unknown]
  - Cough [Unknown]
  - Emphysema [Unknown]
  - Cardiac hypertrophy [Unknown]
  - Dyspnoea at rest [Unknown]
